FAERS Safety Report 8131687-8 (Version None)
Quarter: 2012Q1

REPORT INFORMATION
  Report Type: 
  Country: None (occurrence: None)
  Receive Date: 20120213
  Receipt Date: 20120202
  Transmission Date: 20120608
  Serious: Yes (Other)
  Sender: FDA-Public Use
  Company Number: CA-JNJFOC-20120203236

PATIENT
  Sex: Female

DRUGS (2)
  1. STEROIDS NOS [Concomitant]
     Route: 065
  2. REMICADE [Suspect]
     Indication: COLITIS ULCERATIVE
     Route: 042
     Dates: start: 20060801, end: 20110601

REACTIONS (2)
  - DRUG SPECIFIC ANTIBODY PRESENT [None]
  - RHEUMATOID ARTHRITIS [None]
